FAERS Safety Report 9003176 (Version 1)
Quarter: 2013Q1

REPORT INFORMATION
  Report Type: Spontaneous
  Country: US (occurrence: US)
  Receive Date: 20130108
  Receipt Date: 20130108
  Transmission Date: 20140127
  Serious: Yes (Hospitalization)
  Sender: FDA-Public Use
  Company Number: US-009507513-1301USA001318

PATIENT
  Sex: Male

DRUGS (2)
  1. SINGULAIR [Suspect]
     Dosage: 5.00 MG, QD
  2. STERANE [Suspect]

REACTIONS (2)
  - Drug interaction [Unknown]
  - Asthma [Unknown]
